FAERS Safety Report 10244065 (Version 1)
Quarter: 2014Q2

REPORT INFORMATION
  Report Type: Spontaneous
  Country: SE (occurrence: SE)
  Receive Date: 20140618
  Receipt Date: 20140618
  Transmission Date: 20141212
  Serious: Yes (Other)
  Sender: FDA-Public Use
  Company Number: SE-PFIZER INC-2014163479

PATIENT
  Age: 61 Year
  Sex: Female

DRUGS (18)
  1. TAZOCIN [Suspect]
     Indication: INFECTION
     Dates: start: 201404
  2. MOVICOL [Concomitant]
  3. WARAN [Concomitant]
  4. TROMBYL [Concomitant]
     Dosage: 75 MG, UNK
  5. FURIX RETARD [Concomitant]
  6. METOPROLOL SANDOZ [Concomitant]
  7. ENALAPRIL ASTIMEX [Concomitant]
  8. SIMVASTATIN SANDOZ [Concomitant]
  9. DAIVOBET [Concomitant]
  10. LEVAXIN [Concomitant]
  11. ERGENYL RETARD [Concomitant]
  12. KLOMIPRAMIN MYLAN [Concomitant]
  13. CITALOPRAM SANDOZ [Concomitant]
  14. PANODIL [Concomitant]
  15. STESOLID [Concomitant]
  16. RINGER-ACETAT FRESENIUS KABI [Concomitant]
  17. GENTAMICIN SULFATE [Concomitant]
  18. PERFALGAN [Concomitant]

REACTIONS (2)
  - Pemphigoid [Unknown]
  - Rash [Unknown]
